FAERS Safety Report 4866805-8 (Version None)
Quarter: 2005Q4

REPORT INFORMATION
  Report Type: 
  Country: None (occurrence: None)
  Receive Date: 20051222
  Receipt Date: 20051212
  Transmission Date: 20060501
  Serious: Yes (Other)
  Sender: FDA-Public Use
  Company Number: 2005168843

PATIENT
  Age: 53 Year
  Sex: Female

DRUGS (4)
  1. EPIRUBICIN [Suspect]
     Indication: BREAST CANCER
     Dosage: 100 MG/M2 CYCLIC INTERVAL: 21 DAYS INTRAVENOUS
     Route: 042
  2. CYCLOPHOSPHAMIDE [Concomitant]
  3. METHOTREXATE [Concomitant]
  4. FLUOROURACIL [Concomitant]

REACTIONS (5)
  - INFUSION SITE INDURATION [None]
  - SKIN TURGOR DECREASED [None]
  - VEIN DISORDER [None]
  - VEIN PAIN [None]
  - VENOUS THROMBOSIS [None]
